FAERS Safety Report 23245573 (Version 1)
Quarter: 2023Q4

REPORT INFORMATION
  Report Type: Spontaneous
  Country: CN (occurrence: CN)
  Receive Date: 20231130
  Receipt Date: 20231130
  Transmission Date: 20240110
  Serious: Yes (Death)
  Sender: FDA-Public Use
  Company Number: CN-STRIDES ARCOLAB LIMITED-2023SP017781

PATIENT
  Sex: Male

DRUGS (15)
  1. CYCLOSPORINE [Suspect]
     Active Substance: CYCLOSPORINE
     Indication: Product used for unknown indication
     Dosage: UNK, (MOTHER DOSE: 2MG/KG)
     Route: 064
  2. CYCLOSPORINE [Suspect]
     Active Substance: CYCLOSPORINE
     Dosage: UNK, (MOTHER DOSE 25 MG TWICE DAILY)
     Route: 064
  3. PREDNISOLONE [Suspect]
     Active Substance: PREDNISOLONE
     Indication: Product used for unknown indication
     Dosage: UNK
     Route: 064
  4. PREDNISOLONE [Suspect]
     Active Substance: PREDNISOLONE
     Dosage: UNK, (MOTHER DOSE: 10 MG PER DAY)
     Route: 064
  5. PREDNISOLONE [Suspect]
     Active Substance: PREDNISOLONE
     Dosage: UNK, (MOTHER DOSE 7.5  MG PER DAY)
     Route: 064
  6. AZATHIOPRINE [Suspect]
     Active Substance: AZATHIOPRINE
     Indication: Product used for unknown indication
     Dosage: UNK
     Route: 064
  7. METHYLPREDNISOLONE [Suspect]
     Active Substance: METHYLPREDNISOLONE
     Indication: Haemophagocytic lymphohistiocytosis
     Dosage: UNK, (MOTHER DOSE: 40 MG/DAY (0.8 MG/KG/DAY))
     Route: 064
  8. METHYLPREDNISOLONE [Suspect]
     Active Substance: METHYLPREDNISOLONE
     Indication: Systemic lupus erythematosus
     Dosage: UNK, (MOTHER DOSE:  PULSE THERAPY)
     Route: 064
  9. METHYLPREDNISOLONE [Suspect]
     Active Substance: METHYLPREDNISOLONE
     Dosage: UNK, (MOTHER DOSE: 40 MG/DAY (0.8 MG/KG/DAY))
     Route: 064
  10. METHYLPREDNISOLONE [Suspect]
     Active Substance: METHYLPREDNISOLONE
     Dosage: UNK
     Route: 065
  11. HYDROXYCHLOROQUINE [Suspect]
     Active Substance: HYDROXYCHLOROQUINE
     Indication: Product used for unknown indication
     Dosage: UNK, (SELF-DISCONTINUED BY MOTHER)
     Route: 064
  12. HYDROXYCHLOROQUINE [Suspect]
     Active Substance: HYDROXYCHLOROQUINE
     Dosage: UNK, RE-ADMINISTERED FOR MOTHER
     Route: 064
  13. IRON [Suspect]
     Active Substance: IRON
     Indication: Product used for unknown indication
     Dosage: UNK
     Route: 064
  14. Immunoglobulin [Concomitant]
     Indication: Haemophagocytic lymphohistiocytosis
     Dosage: UNK
     Route: 065
  15. Immunoglobulin [Concomitant]
     Indication: Systemic lupus erythematosus

REACTIONS (2)
  - Death [Fatal]
  - Foetal exposure during pregnancy [Unknown]
